FAERS Safety Report 9804253 (Version 2)
Quarter: 2014Q1

REPORT INFORMATION
  Report Type: Report from Study
  Country: FR (occurrence: FR)
  Receive Date: 20140108
  Receipt Date: 20140127
  Transmission Date: 20141002
  Serious: Yes (Other)
  Sender: FDA-Public Use
  Company Number: FR-ACTELION-A-CH2014-93209

PATIENT
  Age: 13 Year
  Sex: Female
  Weight: 34 kg

DRUGS (6)
  1. ZAVESCA [Suspect]
     Indication: NIEMANN-PICK DISEASE
     Dosage: 200 MG, BID
     Route: 048
     Dates: start: 20100515
  2. ZAVESCA [Suspect]
     Dosage: 400 MG, BID
     Route: 048
  3. KANEURON [Concomitant]
  4. KEPPRA [Concomitant]
  5. ARTANE [Concomitant]
  6. ANAFRANIL [Concomitant]

REACTIONS (5)
  - Convulsion [Not Recovered/Not Resolved]
  - Hypertonia [Not Recovered/Not Resolved]
  - Eye movement disorder [Not Recovered/Not Resolved]
  - Condition aggravated [Not Recovered/Not Resolved]
  - Neuropathy peripheral [Not Recovered/Not Resolved]
